FAERS Safety Report 9994723 (Version 1)
Quarter: 2014Q1

REPORT INFORMATION
  Report Type: Spontaneous
  Country: GB (occurrence: GB)
  Receive Date: 20140311
  Receipt Date: 20140311
  Transmission Date: 20141002
  Serious: Yes (Other)
  Sender: FDA-Public Use
  Company Number: GB-UCBSA-113944

PATIENT
  Age: 33 Year
  Sex: Female

DRUGS (2)
  1. CIMZIA [Suspect]
     Indication: RHEUMATOID ARTHRITIS
     Dosage: 400MG
     Route: 058
     Dates: start: 20140128, end: 20140204
  2. TOCILIZUMAB [Concomitant]

REACTIONS (5)
  - Cognitive disorder [Unknown]
  - Diarrhoea [Unknown]
  - Incontinence [Unknown]
  - Mood swings [Unknown]
  - Paranoia [Unknown]
